FAERS Safety Report 24307556 (Version 1)
Quarter: 2024Q3

REPORT INFORMATION
  Report Type: Spontaneous
  Country: SE (occurrence: SE)
  Receive Date: 20240911
  Receipt Date: 20240911
  Transmission Date: 20241016
  Serious: Yes (Hospitalization)
  Sender: PFIZER
  Company Number: None

PATIENT
  Age: 70 Year
  Sex: Female

DRUGS (1)
  1. PEMETREXED [Suspect]
     Active Substance: PEMETREXED
     Indication: Lung adenocarcinoma
     Dosage: 725 MG
     Route: 042
     Dates: start: 20240611, end: 20240704

REACTIONS (1)
  - Alveolitis [Not Recovered/Not Resolved]

NARRATIVE: CASE EVENT DATE: 20240704
